FAERS Safety Report 10017221 (Version 2)
Quarter: 2014Q1

REPORT INFORMATION
  Report Type: Spontaneous
  Country: US (occurrence: US)
  Receive Date: 20140318
  Receipt Date: 20140331
  Transmission Date: 20141002
  Serious: Yes (Other)
  Sender: FDA-Public Use
  Company Number: US-BAYER-2014-040077

PATIENT
  Age: 20 Year
  Sex: Female

DRUGS (7)
  1. YAZ [Suspect]
  2. NEXIUM [Concomitant]
     Dosage: 40 MG, DAILY
     Route: 048
     Dates: start: 20100325
  3. PROMETHAZINE [Concomitant]
     Dosage: 25 MG, PRN EVERY 6 HOURS
     Route: 048
     Dates: start: 20100325
  4. DICYCLOMINE [Concomitant]
     Dosage: 10 MG, QID
     Route: 048
     Dates: start: 20100325
  5. OXYCODONE W/PARACETAMOL [Concomitant]
     Dosage: 5-325 EVERY 4 HOURS PRN
     Route: 048
     Dates: start: 20100325
  6. TYLENOL [PARACETAMOL] [Concomitant]
     Dosage: 500 MG, AS NEEDED
     Route: 048
     Dates: start: 20100325
  7. LIDODERM [Concomitant]
     Dosage: ON 12 HOURS OFF 12HOURS
     Route: 061
     Dates: start: 20100325

REACTIONS (2)
  - Cholecystectomy [None]
  - Cholecystitis chronic [None]
